FAERS Safety Report 24298360 (Version 6)
Quarter: 2025Q2

REPORT INFORMATION
  Report Type: Report from Study
  Country: US (occurrence: US)
  Receive Date: 20240909
  Receipt Date: 20250422
  Transmission Date: 20250717
  Serious: No
  Sender: SUNOVION
  Company Number: US-SMPA-2024SPA001288AA

PATIENT

DRUGS (2)
  1. ORGOVYX [Suspect]
     Active Substance: RELUGOLIX
     Indication: Prostate cancer
     Dosage: 120 MG, QD
     Route: 048
     Dates: start: 20240729
  2. MONTELUKAST [Concomitant]
     Active Substance: MONTELUKAST
     Route: 065

REACTIONS (11)
  - Laziness [Unknown]
  - Pain [Unknown]
  - Back disorder [Unknown]
  - Balance disorder [Unknown]
  - Nasopharyngitis [Recovered/Resolved]
  - Nocturia [Recovering/Resolving]
  - Memory impairment [Not Recovered/Not Resolved]
  - Somnolence [Unknown]
  - Fatigue [Unknown]
  - Blood glucose increased [Unknown]
  - Incorrect dose administered [Unknown]
